FAERS Safety Report 9858784 (Version 2)
Quarter: 2014Q1

REPORT INFORMATION
  Report Type: Spontaneous
  Country: JP (occurrence: JP)
  Receive Date: 20140131
  Receipt Date: 20140131
  Transmission Date: 20141002
  Serious: Yes (Death, Life-Threatening, Other)
  Sender: FDA-Public Use
  Company Number: JP-BAYER-2013-128186

PATIENT
  Age: 70 Year
  Sex: Female

DRUGS (9)
  1. STIVARGA [Suspect]
     Indication: COLON CANCER
     Dosage: 80 MG, QD
     Route: 048
     Dates: start: 20131007, end: 20131028
  2. STIVARGA [Suspect]
     Indication: COLON CANCER
     Dosage: 80 MG, QD
     Route: 048
     Dates: start: 20131104, end: 20131125
  3. MILMAG [Concomitant]
     Dosage: DAILY DOSE 2100 MG
     Route: 048
     Dates: start: 20131102
  4. BIOFERMIN R [Concomitant]
     Dosage: DAILY DOSE 3 DF
     Route: 048
     Dates: start: 20131102
  5. ALDACTONE A [Concomitant]
     Dosage: DAILY DOSE 50 MG
     Route: 048
     Dates: start: 20131102
  6. LASIX [Concomitant]
     Dosage: DAILY DOSE 40 MG
     Route: 048
     Dates: start: 20131102
  7. DERMOVATE [Concomitant]
     Dosage: UNK
     Route: 061
     Dates: start: 20131102
  8. HIRUDOID [Concomitant]
     Dosage: UNK
     Route: 061
     Dates: start: 20131102
  9. BORRAZA-G [Concomitant]
     Dosage: UNK
     Route: 061
     Dates: start: 20131102

REACTIONS (8)
  - Colon cancer [Fatal]
  - Blood lactate dehydrogenase increased [Recovering/Resolving]
  - Palmar-plantar erythrodysaesthesia syndrome [Not Recovered/Not Resolved]
  - Neutrophil count decreased [Not Recovered/Not Resolved]
  - Blood bilirubin increased [Not Recovered/Not Resolved]
  - Decreased appetite [Not Recovered/Not Resolved]
  - Hepatic failure [Not Recovered/Not Resolved]
  - Decreased appetite [Recovering/Resolving]
